FAERS Safety Report 10883209 (Version 1)
Quarter: 2015Q1

REPORT INFORMATION
  Report Type: Spontaneous
  Country: US (occurrence: US)
  Receive Date: 20150303
  Receipt Date: 20150303
  Transmission Date: 20150721
  Serious: Yes (Life-Threatening, Hospitalization, Disabling, Other)
  Sender: FDA-Public Use
  Company Number: US-ACORDA-ACO_38808_2013

PATIENT
  Age: 58 Year
  Sex: Male

DRUGS (6)
  1. LUNESTA [Concomitant]
     Active Substance: ESZOPICLONE
     Indication: SLEEP DISORDER
     Dosage: UNK,UNK
     Route: 065
  2. OXYCONTIN [Concomitant]
     Active Substance: OXYCODONE HYDROCHLORIDE
     Indication: BACK DISORDER
     Dosage: UNK,UNK
     Route: 065
  3. FLAGYL [Concomitant]
     Active Substance: METRONIDAZOLE\METRONIDAZOLE HYDROCHLORIDE
     Indication: PRODUCT USED FOR UNKNOWN INDICATION
     Route: 065
  4. CIPRO [Interacting]
     Active Substance: CIPROFLOXACIN HYDROCHLORIDE
     Indication: COLON INJURY
     Dosage: 500MG, UNK
     Route: 065
     Dates: start: 20110812
  5. ZANAFLEX [Suspect]
     Active Substance: TIZANIDINE HYDROCHLORIDE
     Indication: MUSCLE SPASMS
     Dosage: 12 MG, HS
     Route: 065
  6. PREVACID [Concomitant]
     Active Substance: LANSOPRAZOLE
     Indication: PRODUCT USED FOR UNKNOWN INDICATION
     Dosage: UNK, HS

REACTIONS (24)
  - Coma [Recovered/Resolved]
  - Heart rate decreased [Recovered/Resolved]
  - Altered state of consciousness [Recovered/Resolved]
  - Gait disturbance [Not Recovered/Not Resolved]
  - Brain injury [Not Recovered/Not Resolved]
  - Overdose [Recovered/Resolved with Sequelae]
  - Hypotension [Recovered/Resolved]
  - Balance disorder [Not Recovered/Not Resolved]
  - Multi-organ disorder [Unknown]
  - Impaired driving ability [Not Recovered/Not Resolved]
  - Cardiac arrest [Recovered/Resolved]
  - Myocardial infarction [Recovered/Resolved]
  - Chronic kidney disease [Not Recovered/Not Resolved]
  - Sleep apnoea syndrome [Not Recovered/Not Resolved]
  - Muscle fatigue [Not Recovered/Not Resolved]
  - Gastric infection [Recovered/Resolved]
  - Memory impairment [Not Recovered/Not Resolved]
  - Anoxia [Recovered/Resolved with Sequelae]
  - Colon injury [Unknown]
  - Chest pain [Recovered/Resolved]
  - Asthenia [Not Recovered/Not Resolved]
  - Acute kidney injury [Recovered/Resolved]
  - Labelled drug-drug interaction medication error [Unknown]
  - Post-traumatic stress disorder [Not Recovered/Not Resolved]

NARRATIVE: CASE EVENT DATE: 2003
